FAERS Safety Report 7266944-0 (Version None)
Quarter: 2011Q1

REPORT INFORMATION
  Report Type: 
  Country: None (occurrence: None)
  Receive Date: 20110119
  Receipt Date: 20110114
  Transmission Date: 20110831
  Serious: Yes (Other)
  Sender: FDA-Public Use
  Company Number: 2011SP002066

PATIENT
  Age: 43 Year
  Sex: Male

DRUGS (3)
  1. PROPOFOL [Suspect]
     Indication: ANAESTHESIA PROCEDURE
  2. SEVOFLURANE [Suspect]
     Indication: ANAESTHESIA PROCEDURE
  3. ROCURONIUM BROMIDE [Suspect]
     Indication: NEUROMUSCULAR BLOCKING THERAPY
     Dosage: IV

REACTIONS (1)
  - RHABDOMYOLYSIS [None]
